FAERS Safety Report 10171130 (Version 1)
Quarter: 2014Q2

REPORT INFORMATION
  Report Type: Spontaneous
  Country: US (occurrence: US)
  Receive Date: 20140514
  Receipt Date: 20140514
  Transmission Date: 20141212
  Serious: No
  Sender: FDA-Public Use
  Company Number: US-BAYER-2014-071030

PATIENT
  Age: 43 Year
  Sex: Female

DRUGS (2)
  1. GADAVIST [Suspect]
     Indication: COMPUTERISED TOMOGRAM ABDOMEN
     Dosage: 10 ML, ONCE
     Route: 042
     Dates: start: 20140512, end: 20140512
  2. BENADRYL [Concomitant]
     Indication: PREMEDICATION
     Dosage: 50 MG, UNK
     Dates: start: 20140512

REACTIONS (1)
  - Urticaria [Recovered/Resolved]
